FAERS Safety Report 14681614 (Version 1)
Quarter: 2018Q1

REPORT INFORMATION
  Report Type: Spontaneous
  Country: FR (occurrence: FR)
  Receive Date: 20180326
  Receipt Date: 20180326
  Transmission Date: 20180509
  Serious: Yes (Other)
  Sender: FDA-Public Use
  Company Number: FR-PFIZER INC-2018123049

PATIENT
  Age: 35 Year
  Sex: Female
  Weight: 74 kg

DRUGS (4)
  1. LEVOTHYROXIN [Concomitant]
     Active Substance: LEVOTHYROXINE
     Dosage: UNK
  2. GOSERELIN [Concomitant]
     Active Substance: GOSERELIN
     Dosage: UNK
     Dates: start: 201705
  3. PALBOCICLIB [Suspect]
     Active Substance: PALBOCICLIB
     Indication: INVASIVE DUCTAL BREAST CARCINOMA
     Dosage: 125 MG, UNK
     Route: 048
     Dates: start: 201711
  4. FULVESTRANT. [Concomitant]
     Active Substance: FULVESTRANT
     Dosage: 500 MG, UNK
     Route: 030
     Dates: start: 201711

REACTIONS (7)
  - Neutropenia [Unknown]
  - Anal abscess [Unknown]
  - Blindness [Recovered/Resolved]
  - Asthenia [Recovering/Resolving]
  - Vision blurred [Recovered/Resolved]
  - Neoplasm progression [Unknown]
  - Anaemia [Recovering/Resolving]

NARRATIVE: CASE EVENT DATE: 201802
